FAERS Safety Report 22264389 (Version 1)
Quarter: 2023Q2

REPORT INFORMATION
  Report Type: Spontaneous
  Country: US (occurrence: None)
  Receive Date: 20230428
  Receipt Date: 20230428
  Transmission Date: 20230722
  Serious: Yes (Life-Threatening)
  Sender: FDA-Public Use
  Company Number: 2023A099215

PATIENT
  Age: 36 Year
  Sex: Female

DRUGS (4)
  1. QUETIAPINE [Suspect]
     Active Substance: QUETIAPINE
     Route: 048
  2. VENLAFAXINE [Suspect]
     Active Substance: VENLAFAXINE HYDROCHLORIDE
  3. GRANISETRON [Suspect]
     Active Substance: GRANISETRON
  4. CLONAZEPAM [Suspect]
     Active Substance: CLONAZEPAM

REACTIONS (1)
  - Serotonin syndrome [Unknown]
